FAERS Safety Report 7806936-3 (Version None)
Quarter: 2011Q4

REPORT INFORMATION
  Report Type: 
  Country: None (occurrence: None)
  Receive Date: 20111011
  Receipt Date: 20111005
  Transmission Date: 20120403
  Serious: Yes (Hospitalization)
  Sender: FDA-Public Use
  Company Number: NL-AMGEN-NLDCT2011035712

PATIENT
  Age: 81 Year
  Sex: Female

DRUGS (8)
  1. CINACALCET HYDROCHLORIDE [Suspect]
     Indication: HYPERPARATHYROIDISM PRIMARY
     Dosage: UNK
     Route: 048
     Dates: start: 20091118, end: 20091209
  2. SINTROM [Concomitant]
     Dosage: 1 MG, UNK
  3. SOTALOL HCL [Concomitant]
     Dosage: 40 MG, TID
  4. PANTOPAC [Concomitant]
  5. PROPYLTHIOURACIL [Concomitant]
     Dosage: 50 MG, BID
  6. DIOVAN [Concomitant]
     Dosage: 80 MG, QD
  7. FOLIC ACID [Concomitant]
     Dosage: 5 MG, QD
  8. LERDIP [Concomitant]
     Dosage: 10 MG, QD

REACTIONS (3)
  - MUSCLE SPASMS [None]
  - HYPOCALCAEMIA [None]
  - MICROCYTIC ANAEMIA [None]
